FAERS Safety Report 7357037-2 (Version None)
Quarter: 2011Q1

REPORT INFORMATION
  Report Type: 
  Country: None (occurrence: None)
  Receive Date: 20110310
  Receipt Date: 20110310
  Transmission Date: 20110831
  Serious: Yes (Life-Threatening)
  Sender: FDA-Public Use
  Company Number: None

PATIENT
  Age: 76 Year
  Sex: Female
  Weight: 72.5755 kg

DRUGS (1)
  1. PRAVASTATIN [Suspect]
     Indication: BLOOD CHOLESTEROL INCREASED
     Dosage: 40MG ONCE DAILY PO
     Route: 048
     Dates: start: 20090101, end: 20110210

REACTIONS (10)
  - ARTHRALGIA [None]
  - JOINT SWELLING [None]
  - FEELING ABNORMAL [None]
  - NASOPHARYNGITIS [None]
  - PAIN IN EXTREMITY [None]
  - DEPRESSION [None]
  - RED BLOOD CELL SEDIMENTATION RATE INCREASED [None]
  - CYSTITIS [None]
  - INFLAMMATION [None]
  - MYALGIA [None]
